FAERS Safety Report 9138250 (Version 1)
Quarter: 2013Q1

REPORT INFORMATION
  Report Type: Spontaneous
  Country: DE (occurrence: DE)
  Receive Date: 20130305
  Receipt Date: 20130305
  Transmission Date: 20140127
  Serious: Yes (Hospitalization)
  Sender: FDA-Public Use
  Company Number: DE-AMGEN-DEUSP2013014725

PATIENT
  Age: 58 Year
  Sex: Female

DRUGS (4)
  1. ENBREL [Suspect]
     Indication: ANKYLOSING SPONDYLITIS
     Dosage: 50 MG, WEEKLY
     Dates: start: 20130204
  2. ENBREL [Suspect]
     Dosage: 50 MG, WEEKLY
     Dates: start: 20070101, end: 20121217
  3. TILIDINE [Concomitant]
     Dosage: UNK
  4. ARCOXIA [Concomitant]
     Dosage: UNK

REACTIONS (2)
  - Arthropathy [Recovered/Resolved]
  - Neck pain [Recovered/Resolved]
